FAERS Safety Report 8153177-9 (Version None)
Quarter: 2012Q1

REPORT INFORMATION
  Report Type: 
  Country: None (occurrence: None)
  Receive Date: 20120221
  Receipt Date: 20120208
  Transmission Date: 20120608
  Serious: Yes (Hospitalization)
  Sender: FDA-Public Use
  Company Number: FR-UCBSA-051156

PATIENT
  Sex: Female

DRUGS (2)
  1. KEPPRA [Suspect]
     Dosage: UNKNOWN DOSE RE-INTRODUCED AND DISCONTINUED LATER
     Route: 048
  2. KEPPRA [Suspect]
     Indication: EPILEPSY
     Dosage: DOSE:UNKNOWN
     Route: 048

REACTIONS (2)
  - COMA [None]
  - HYPERAMMONAEMIA [None]
